FAERS Safety Report 5848192-1 (Version None)
Quarter: 2008Q3

REPORT INFORMATION
  Report Type: 
  Country: None (occurrence: None)
  Receive Date: 20080818
  Receipt Date: 20080814
  Transmission Date: 20090109
  Serious: Yes (Life-Threatening, Hospitalization)
  Sender: FDA-Public Use
  Company Number: B0440080A

PATIENT
  Age: 61 Year
  Sex: Male

DRUGS (7)
  1. CARVEDILOL [Suspect]
     Indication: HYPERTENSION
     Dosage: 2.5MG TWICE PER DAY
     Route: 048
     Dates: start: 20060210, end: 20060315
  2. PANALDINE [Suspect]
     Indication: ACUTE MYOCARDIAL INFARCTION
     Dosage: 100MG TWICE PER DAY
     Route: 048
     Dates: start: 20060207, end: 20060310
  3. MICARDIS [Suspect]
     Indication: HYPERTENSION
     Dosage: 40MG PER DAY
     Route: 048
     Dates: start: 20060207, end: 20060315
  4. GASTER D [Suspect]
     Indication: GASTRIC ULCER
     Dosage: 20MG TWICE PER DAY
     Route: 048
     Dates: start: 20060207, end: 20060315
  5. LIPITOR [Suspect]
     Dosage: 10MG PER DAY
     Route: 048
     Dates: start: 20060207, end: 20060315
  6. ASPIRIN [Concomitant]
  7. PLETAL [Concomitant]
     Dates: start: 20060310

REACTIONS (14)
  - ALANINE AMINOTRANSFERASE INCREASED [None]
  - ASPARTATE AMINOTRANSFERASE INCREASED [None]
  - BILIRUBIN CONJUGATED INCREASED [None]
  - BLOOD ALKALINE PHOSPHATASE INCREASED [None]
  - BLOOD BILIRUBIN INCREASED [None]
  - FAECES PALE [None]
  - GAMMA-GLUTAMYLTRANSFERASE INCREASED [None]
  - HEPATIC ENZYME INCREASED [None]
  - HEPATITIS [None]
  - INFECTION [None]
  - JAUNDICE [None]
  - LIVER DISORDER [None]
  - PRURITUS [None]
  - PYREXIA [None]
